FAERS Safety Report 21291781 (Version 3)
Quarter: 2023Q1

REPORT INFORMATION
  Report Type: Report from Study
  Country: US (occurrence: US)
  Receive Date: 20220903
  Receipt Date: 20230316
  Transmission Date: 20230418
  Serious: Yes (Hospitalization, Other)
  Sender: FDA-Public Use
  Company Number: US-ABBVIE-22K-163-4478265-00

PATIENT
  Sex: Female

DRUGS (9)
  1. IMBRUVICA [Suspect]
     Active Substance: IBRUTINIB
     Indication: Chronic lymphocytic leukaemia
     Dosage: TIME INTERVAL: 0.33333333 DAYS: FORM STRENGTH: 420 MILLIGRAM
     Route: 048
     Dates: start: 20170211, end: 20190308
  2. IMBRUVICA [Suspect]
     Active Substance: IBRUTINIB
     Indication: Chronic lymphocytic leukaemia
     Dosage: FORM STRENGTH: 280 MILLIGRAM/ ONSET DATE- 2019
     Route: 048
     Dates: end: 20191227
  3. IMBRUVICA [Suspect]
     Active Substance: IBRUTINIB
     Indication: Chronic lymphocytic leukaemia
     Dosage: FORM STRENGTH: 140  MILLIGRAM
     Route: 048
     Dates: end: 20211206
  4. IMBRUVICA [Suspect]
     Active Substance: IBRUTINIB
     Indication: Chronic lymphocytic leukaemia
     Dosage: ONSET DATE: 2022
     Route: 048
     Dates: end: 202207
  5. IMBRUVICA [Suspect]
     Active Substance: IBRUTINIB
     Indication: Chronic lymphocytic leukaemia
     Route: 048
  6. IRON [Concomitant]
     Active Substance: IRON
     Indication: Product used for unknown indication
  7. IMBRUVICA [Suspect]
     Active Substance: IBRUTINIB
     Indication: Chronic lymphocytic leukaemia
     Route: 048
  8. IMBRUVICA [Suspect]
     Active Substance: IBRUTINIB
     Indication: Chronic lymphocytic leukaemia
     Route: 048
     Dates: start: 20210201
  9. TYLENOL ARTHRITIS PAIN [Concomitant]
     Active Substance: ACETAMINOPHEN
     Indication: Pain

REACTIONS (18)
  - Spinal fracture [Unknown]
  - Spinal fracture [Unknown]
  - Blood iron decreased [Unknown]
  - Pain [Unknown]
  - Headache [Unknown]
  - Urinary tract infection [Unknown]
  - Emotional disorder [Unknown]
  - Hernia [Unknown]
  - Walking aid user [Unknown]
  - Anaemia [Unknown]
  - Contusion [Unknown]
  - COVID-19 [Unknown]
  - Eye disorder [Unknown]
  - Arthritis [Unknown]
  - Haemorrhage [Unknown]
  - Breast cancer [Unknown]
  - Back disorder [Unknown]
  - Loss of personal independence in daily activities [Unknown]

NARRATIVE: CASE EVENT DATE: 20220101
